FAERS Safety Report 8078470-X (Version None)
Quarter: 2012Q1

REPORT INFORMATION
  Report Type: 
  Country: None (occurrence: None)
  Receive Date: 20120127
  Receipt Date: 20110118
  Transmission Date: 20120608
  Serious: Yes (Other)
  Sender: FDA-Public Use
  Company Number: US-ABBOTT-10P-163-0678796-00

PATIENT
  Sex: Female
  Weight: 113.5 kg

DRUGS (8)
  1. HUMIRA [Suspect]
     Indication: CROHN'S DISEASE
     Dates: start: 20070301
  2. CLONAZEPAM [Concomitant]
     Indication: INSOMNIA
  3. SIMVASTATIN [Concomitant]
     Indication: BLOOD CHOLESTEROL INCREASED
  4. MULTI-VITAMIN [Concomitant]
     Indication: VITAMIN SUPPLEMENTATION
  5. ASCORBIC ACID [Concomitant]
     Indication: VITAMIN SUPPLEMENTATION
  6. ASACOL [Concomitant]
     Indication: CROHN'S DISEASE
  7. CLONAZEPAM [Concomitant]
     Indication: ANXIETY
  8. BISOPROLOL FUMARATE AND HYDROCHLOROTHIAZIDE [Concomitant]
     Indication: PRODUCT USED FOR UNKNOWN INDICATION
     Dosage: 6.25/2.5 MILLIGRAM, 0.5 TABLET DAILY

REACTIONS (3)
  - CHOLELITHIASIS [None]
  - CATARACT OPERATION [None]
  - HEADACHE [None]
